FAERS Safety Report 9698709 (Version 1)
Quarter: 2013Q4

REPORT INFORMATION
  Report Type: Spontaneous
  Country: FR (occurrence: FR)
  Receive Date: 20131120
  Receipt Date: 20131120
  Transmission Date: 20140711
  Serious: Yes (Hospitalization, Other)
  Sender: FDA-Public Use
  Company Number: FR-PFIZER INC-2013330236

PATIENT
  Age: 49 Year
  Sex: Female

DRUGS (7)
  1. EUPANTOL [Suspect]
     Dosage: UNK
     Route: 042
     Dates: start: 20130221, end: 20130319
  2. TRANXENE [Suspect]
     Dosage: UNK
     Route: 042
     Dates: start: 20130221, end: 20130319
  3. PERFALGAN [Suspect]
     Dosage: UNK
     Route: 042
     Dates: start: 20130221, end: 20130319
  4. ROCEPHINE [Suspect]
     Dosage: UNK
     Route: 042
     Dates: start: 20130212, end: 20130313
  5. KABIVEN [Concomitant]
     Dosage: UNK
     Dates: end: 20130314
  6. ACUPAN [Concomitant]
     Dosage: UNK
     Dates: start: 20130222, end: 20130309
  7. TIBERAL [Concomitant]
     Dosage: UNK
     Dates: end: 20130313

REACTIONS (4)
  - Blood alkaline phosphatase increased [Recovering/Resolving]
  - Agranulocytosis [Recovered/Resolved]
  - Transaminases increased [Recovering/Resolving]
  - Intestinal obstruction [Unknown]
